FAERS Safety Report 7680468-8 (Version None)
Quarter: 2011Q3

REPORT INFORMATION
  Report Type: 
  Country: None (occurrence: None)
  Receive Date: 20110812
  Receipt Date: 20110809
  Transmission Date: 20111222
  Serious: Yes (Other)
  Sender: FDA-Public Use
  Company Number: US-PFIZER INC-2011136694

PATIENT
  Sex: Male

DRUGS (1)
  1. ADVIL LIQUI-GELS [Suspect]
     Dosage: UNK,DAILY

REACTIONS (4)
  - ACUTE SINUSITIS [None]
  - PAIN [None]
  - FLATULENCE [None]
  - HIATUS HERNIA [None]
